FAERS Safety Report 4862387-5 (Version None)
Quarter: 2005Q4

REPORT INFORMATION
  Report Type: 
  Country: None (occurrence: None)
  Receive Date: 20051219
  Receipt Date: 20051219
  Transmission Date: 20060501
  Serious: Yes (Hospitalization)
  Sender: FDA-Public Use
  Company Number: None

PATIENT
  Age: 77 Year
  Sex: Male

DRUGS (3)
  1. WARFARIN SODIUM [Suspect]
     Indication: FACTOR V DEFICIENCY
     Dosage: 7.5MG   DAILY   PO
     Route: 048
     Dates: start: 20030101
  2. WARFARIN SODIUM [Suspect]
     Indication: PULMONARY EMBOLISM
     Dosage: 7.5MG   DAILY   PO
     Route: 048
     Dates: start: 20030101
  3. CLOPIDOGREL     75MG        SANOFI-SYNTHELABO [Suspect]
     Indication: CORONARY ARTERY DISEASE
     Dosage: 75MG   DAILY   PO
     Route: 048

REACTIONS (4)
  - ANGINA PECTORIS [None]
  - DUODENAL ULCER [None]
  - HAEMOGLOBIN DECREASED [None]
  - MELAENA [None]
